FAERS Safety Report 8031827-5 (Version None)
Quarter: 2012Q1

REPORT INFORMATION
  Report Type: 
  Country: None (occurrence: None)
  Receive Date: 20120109
  Receipt Date: 20120104
  Transmission Date: 20120608
  Serious: Yes (Death, Life-Threatening, Hospitalization)
  Sender: FDA-Public Use
  Company Number: FR-PFIZER INC-FR-WYE-G04116209

PATIENT
  Age: 17 Year
  Sex: Female

DRUGS (19)
  1. KEPPRA [Suspect]
     Indication: STATUS EPILEPTICUS
     Dosage: UNK
     Route: 042
     Dates: start: 20081206
  2. SUFENTA PRESERVATIVE FREE [Suspect]
     Indication: SEDATION
     Dosage: UNK
     Route: 042
     Dates: start: 20081129, end: 20081225
  3. URBANYL [Suspect]
     Indication: STATUS EPILEPTICUS
     Dosage: UNK
     Route: 042
     Dates: start: 20081215
  4. CYCLOPHOSPHAMIDE [Suspect]
     Indication: SJOGREN'S SYNDROME
     Dosage: 750.0 MG, 1X/CYC
     Route: 042
     Dates: start: 20081225
  5. PARACETAMOL [Concomitant]
     Route: 065
  6. PHENOBARBITAL TAB [Suspect]
     Indication: STATUS EPILEPTICUS
     Dosage: UNK
     Route: 042
     Dates: start: 20081201
  7. PENTOTHAL [Suspect]
     Indication: SEDATION
     Dosage: UNK
     Route: 042
     Dates: start: 20081208
  8. NEOSTIGMINE [Concomitant]
     Dosage: UNK
     Route: 065
     Dates: start: 20081101
  9. DUPHALAC [Concomitant]
     Route: 048
  10. VANCOMYCIN HCL [Suspect]
     Indication: PNEUMONIA STAPHYLOCOCCAL
     Dosage: UNK
     Route: 042
     Dates: start: 20081201
  11. PIPERACILLIN AND TAZOBACTAM [Suspect]
     Indication: ESCHERICHIA BACTERAEMIA
     Dosage: UNK
     Route: 042
     Dates: start: 20081225
  12. PANTOPRAZOLE SODIUM [Suspect]
     Indication: PROPHYLAXIS AGAINST GASTROINTESTINAL ULCER
     Dosage: UNK
     Route: 065
     Dates: start: 20081201
  13. DIPRIVAN [Suspect]
     Indication: SEDATION
     Dosage: UNK
     Route: 042
     Dates: start: 20081218
  14. DEPAKENE [Suspect]
     Indication: STATUS EPILEPTICUS
     Dosage: UNK
     Route: 042
     Dates: start: 20081226
  15. AMIKACIN [Suspect]
     Indication: ESCHERICHIA BACTERAEMIA
     Dosage: UNK
     Route: 042
     Dates: start: 20081225
  16. SOLU-MEDROL [Concomitant]
     Route: 065
  17. NOREPINEPHRINE [Concomitant]
     Route: 065
  18. FOSPHENYTOIN SODIUM [Suspect]
     Indication: STATUS EPILEPTICUS
     Dosage: UNK
     Route: 042
     Dates: start: 20081209, end: 20081201
  19. NEUPOGEN [Concomitant]
     Dosage: UNK
     Route: 065
     Dates: start: 20081201

REACTIONS (6)
  - HISTIOCYTOSIS HAEMATOPHAGIC [None]
  - AGRANULOCYTOSIS [None]
  - SEPTIC SHOCK [None]
  - CONDITION AGGRAVATED [None]
  - PANCYTOPENIA [None]
  - MULTI-ORGAN FAILURE [None]
